FAERS Safety Report 21534709 (Version 1)
Quarter: 2022Q4

REPORT INFORMATION
  Report Type: Spontaneous
  Country: US (occurrence: US)
  Receive Date: 20221101
  Receipt Date: 20221101
  Transmission Date: 20230112
  Serious: No
  Sender: FDA-Public Use
  Company Number: US-MIGRATION_PFIZER-2022BHV001765

PATIENT
  Age: 58 Year
  Sex: Male

DRUGS (2)
  1. NURTEC ODT [Suspect]
     Active Substance: RIMEGEPANT SULFATE
     Indication: Headache
     Route: 065
  2. NURTEC ODT [Suspect]
     Active Substance: RIMEGEPANT SULFATE
     Indication: Migraine

REACTIONS (2)
  - COVID-19 [Unknown]
  - Drug ineffective [Recovered/Resolved]

NARRATIVE: CASE EVENT DATE: 20220622
